FAERS Safety Report 6805781-5 (Version None)
Quarter: 2010Q2

REPORT INFORMATION
  Report Type: 
  Country: None (occurrence: None)
  Receive Date: 20100628
  Receipt Date: 20100614
  Transmission Date: 20101027
  Serious: Yes (Other)
  Sender: FDA-Public Use
  Company Number: GB-MYLANLABS-2010S1010663

PATIENT
  Age: 11 Year
  Sex: Female

DRUGS (5)
  1. TIZANIDINE [Suspect]
     Indication: MUSCLE SPASMS
     Dates: start: 20100222, end: 20100328
  2. BACLOFEN [Concomitant]
     Indication: MUSCLE SPASMS
     Route: 039
     Dates: start: 20040101
  3. CHLORAL HYDRATE [Concomitant]
     Indication: SLEEP DISORDER
     Dates: start: 20090101
  4. GLYCOPYRRONIUM [Concomitant]
     Indication: DROOLING
     Dates: start: 20080101
  5. MERBENTYL [Concomitant]
     Indication: MUSCLE SPASMS
     Dates: start: 20090101

REACTIONS (1)
  - GASTRITIS [None]
